FAERS Safety Report 7093198-0 (Version None)
Quarter: 2010Q4

REPORT INFORMATION
  Report Type: 
  Country: None (occurrence: None)
  Receive Date: 20101110
  Receipt Date: 20101101
  Transmission Date: 20110411
  Serious: Yes (Life-Threatening, Hospitalization, Other)
  Sender: FDA-Public Use
  Company Number: LY-BAYER-201042042GPV

PATIENT
  Age: 76 Year
  Sex: Male
  Weight: 56 kg

DRUGS (6)
  1. NEXAVAR [Suspect]
     Indication: HEPATIC NEOPLASM MALIGNANT
     Route: 048
     Dates: start: 20100705, end: 20100802
  2. NEXAVAR [Suspect]
     Dosage: TOTAL DAILY DOSE: 800 MG  UNIT DOSE: 200 MG
     Route: 048
     Dates: start: 20100327, end: 20100426
  3. NEXAVAR [Suspect]
     Route: 048
     Dates: start: 20100420, end: 20100531
  4. NEXAVAR [Suspect]
     Route: 048
     Dates: start: 20100906, end: 20101002
  5. LACTULOSE [Concomitant]
     Indication: CONSTIPATION
     Route: 048
     Dates: start: 20080101
  6. INDERAL [Concomitant]
     Indication: VARICES OESOPHAGEAL
     Route: 048
     Dates: start: 20080101

REACTIONS (5)
  - DIARRHOEA [None]
  - MELAENA [None]
  - NAIL DISCOLOURATION [None]
  - OESOPHAGEAL VARICES HAEMORRHAGE [None]
  - UPPER GASTROINTESTINAL HAEMORRHAGE [None]
